FAERS Safety Report 16302425 (Version 1)
Quarter: 2019Q2

REPORT INFORMATION
  Report Type: Other
  Country: IN (occurrence: IN)
  Receive Date: 20190513
  Receipt Date: 20190513
  Transmission Date: 20190711
  Serious: Yes (Other)
  Sender: FDA-Public Use
  Company Number: IN-DEXPHARM-20190302

PATIENT

DRUGS (1)
  1. DYNAPAR QUICK PENETRATING SOLUTION [DICLOFENAC DIETHYLAMINE] [Suspect]
     Active Substance: DICLOFENAC DIETHYLAMINE
     Indication: THROMBOSIS PROPHYLAXIS
     Dosage: 10 DROPS 6 HOURLY
     Route: 061

REACTIONS (1)
  - Thrombophlebitis superficial [Unknown]
